FAERS Safety Report 4804363-4 (Version None)
Quarter: 2005Q4

REPORT INFORMATION
  Report Type: 
  Country: None (occurrence: None)
  Receive Date: 20051014
  Receipt Date: 20050929
  Transmission Date: 20060501
  Serious: Yes (Hospitalization)
  Sender: FDA-Public Use
  Company Number: 2005-01249

PATIENT
  Age: 72 Year
  Sex: Male
  Weight: 114.3 kg

DRUGS (8)
  1. VELCADE [Suspect]
     Indication: MULTIPLE MYELOMA
     Dosage: 4.00 MG, INTRAVENOUS
     Route: 042
     Dates: start: 20050309, end: 20050518
  2. GANTOVAN [Concomitant]
  3. ACTOS [Concomitant]
  4. LOTREL [Concomitant]
  5. CRESTOR [Concomitant]
  6. COMPAZINE [Concomitant]
  7. LORTAB [Concomitant]
  8. INSULIN [Concomitant]

REACTIONS (15)
  - ANKLE FRACTURE [None]
  - ASTHENIA [None]
  - AUTONOMIC NEUROPATHY [None]
  - BLOOD CREATININE INCREASED [None]
  - BLOOD UREA INCREASED [None]
  - FALL [None]
  - HYPOTENSION [None]
  - JOINT SPRAIN [None]
  - MITRAL VALVE INCOMPETENCE [None]
  - NAUSEA [None]
  - ORTHOSTATIC HYPOTENSION [None]
  - RENAL CYST [None]
  - SYNCOPE [None]
  - VOMITING [None]
  - WEIGHT DECREASED [None]
